FAERS Safety Report 6232658-9 (Version None)
Quarter: 2009Q2

REPORT INFORMATION
  Report Type: 
  Country: None (occurrence: None)
  Receive Date: 20090617
  Receipt Date: 20090605
  Transmission Date: 20091009
  Serious: Yes (Other)
  Sender: FDA-Public Use
  Company Number: CL-PFIZER INC-2009225047

PATIENT

DRUGS (2)
  1. ZYVOX [Suspect]
  2. ZYVOX [Suspect]

REACTIONS (1)
  - HYPOKALAEMIA [None]
